FAERS Safety Report 8466780-3 (Version None)
Quarter: 2012Q2

REPORT INFORMATION
  Report Type: 
  Country: None (occurrence: None)
  Receive Date: 20120626
  Receipt Date: 20120619
  Transmission Date: 20120825
  Serious: Yes (Hospitalization)
  Sender: FDA-Public Use
  Company Number: US-UCBSA-026774

PATIENT
  Age: 26 Year
  Sex: Female
  Weight: 54 kg

DRUGS (5)
  1. CIMZIA [Suspect]
     Indication: CROHN'S DISEASE
     Route: 058
     Dates: start: 20090814, end: 20090911
  2. CIMZIA [Suspect]
     Route: 058
     Dates: start: 20091021
  3. CIMZIA [Suspect]
     Route: 058
     Dates: start: 20091130
  4. CIMZIA [Suspect]
     Route: 058
     Dates: start: 20091215, end: 20100515
  5. CIMZIA [Suspect]
     Route: 058
     Dates: start: 20100702

REACTIONS (1)
  - CLOSTRIDIAL INFECTION [None]
